FAERS Safety Report 9110759 (Version 1)
Quarter: 2013Q1

REPORT INFORMATION
  Report Type: Spontaneous
  Country: US (occurrence: US)
  Receive Date: 20130219
  Receipt Date: 20130219
  Transmission Date: 20140127
  Serious: No
  Sender: FDA-Public Use
  Company Number: US-BRISTOL-MYERS SQUIBB COMPANY-16859373

PATIENT
  Age: 79 Year
  Sex: Female
  Weight: 79.36 kg

DRUGS (2)
  1. ORENCIA [Suspect]
     Indication: RHEUMATOID ARTHRITIS
     Dosage: LAST INFUSION 15JUN12,03OCT12,NO OF INF:2
     Route: 042
  2. LISINOPRIL [Concomitant]

REACTIONS (2)
  - Respiratory tract infection [Recovering/Resolving]
  - Bronchitis [Recovered/Resolved]
